FAERS Safety Report 7233513-8 (Version None)
Quarter: 2011Q1

REPORT INFORMATION
  Report Type: 
  Country: None (occurrence: None)
  Receive Date: 20110113
  Receipt Date: 20110113
  Transmission Date: 20110831
  Serious: Yes (Hospitalization)
  Sender: FDA-Public Use
  Company Number: None

PATIENT
  Age: 62 Year
  Sex: Male
  Weight: 80 kg

DRUGS (1)
  1. MORPHINE [Suspect]
     Dosage: 30 MG SA BID PO
     Route: 048
     Dates: start: 20101207, end: 20101212

REACTIONS (7)
  - LETHARGY [None]
  - SOMNOLENCE [None]
  - NAUSEA [None]
  - MENTAL STATUS CHANGES [None]
  - RESPIRATORY DISTRESS [None]
  - AGITATION [None]
  - UNRESPONSIVE TO STIMULI [None]
